FAERS Safety Report 5130667-4 (Version None)
Quarter: 2006Q4

REPORT INFORMATION
  Report Type: 
  Country: None (occurrence: None)
  Receive Date: 20061018
  Receipt Date: 20061018
  Transmission Date: 20070319
  Serious: Yes (Hospitalization)
  Sender: FDA-Public Use
  Company Number: None

PATIENT
  Sex: Male
  Weight: 91.173 kg

DRUGS (6)
  1. IRINOTECAN HCL [Suspect]
  2. CELEBREX [Suspect]
  3. EFFEXOR [Concomitant]
  4. PROTONIX [Concomitant]
  5. ULTRAM [Concomitant]
  6. ZOFRAN [Concomitant]

REACTIONS (1)
  - SMALL INTESTINAL OBSTRUCTION [None]
